FAERS Safety Report 17891215 (Version 7)
Quarter: 2020Q4

REPORT INFORMATION
  Report Type: Report from Study
  Country: US (occurrence: US)
  Receive Date: 20200612
  Receipt Date: 20201223
  Transmission Date: 20210113
  Serious: No
  Sender: FDA-Public Use
  Company Number: NVSC2020US163988

PATIENT
  Sex: Female

DRUGS (2)
  1. ENTRESTO [Suspect]
     Active Substance: SACUBITRIL\VALSARTAN
     Indication: CARDIAC FAILURE
     Dosage: 0.5 DF, BID
     Route: 048
     Dates: start: 20200511
  2. CARVEDILOL. [Suspect]
     Active Substance: CARVEDILOL
     Indication: PRODUCT USED FOR UNKNOWN INDICATION
     Dosage: UNK UNK, UNKNOWN
     Route: 065

REACTIONS (14)
  - Hyperhidrosis [Unknown]
  - Tension headache [Unknown]
  - Sciatica [Unknown]
  - Dyspnoea [Unknown]
  - Dizziness [Unknown]
  - Nausea [Unknown]
  - Anxiety [Unknown]
  - Fatigue [Recovering/Resolving]
  - Blood pressure decreased [Recovering/Resolving]
  - Wrong technique in product usage process [Unknown]
  - Headache [Unknown]
  - Insomnia [Unknown]
  - Vertigo [Unknown]
  - Back pain [Unknown]
